FAERS Safety Report 6646976-3 (Version None)
Quarter: 2010Q1

REPORT INFORMATION
  Report Type: 
  Country: None (occurrence: None)
  Receive Date: 20100323
  Receipt Date: 20100315
  Transmission Date: 20100710
  Serious: Yes (Other)
  Sender: FDA-Public Use
  Company Number: IT-JNJFOC-20100207873

PATIENT
  Sex: Female
  Weight: 72 kg

DRUGS (6)
  1. RISPERDAL [Suspect]
     Indication: DEPRESSION
     Route: 048
  2. RISPERDAL [Suspect]
     Route: 048
  3. EN [Suspect]
     Indication: DEPRESSION
     Route: 048
  4. EN [Suspect]
     Route: 048
  5. ENTACT [Concomitant]
     Indication: DEPRESSION
     Route: 048
  6. LEVOTHYROXINE SODIUM [Concomitant]
     Indication: HYPOTHYROIDISM
     Route: 048

REACTIONS (3)
  - INTENTIONAL OVERDOSE [None]
  - OFF LABEL USE [None]
  - SELF INJURIOUS BEHAVIOUR [None]
